FAERS Safety Report 18873925 (Version 1)
Quarter: 2021Q1

REPORT INFORMATION
  Report Type: Spontaneous
  Country: US (occurrence: US)
  Receive Date: 20210210
  Receipt Date: 20210210
  Transmission Date: 20210420
  Serious: No
  Sender: FDA-Public Use
  Company Number: US-PFIZER INC-2021076036

PATIENT
  Age: 82 Year
  Sex: Female
  Weight: 77.11 kg

DRUGS (2)
  1. TOZINAMERAN. [Suspect]
     Active Substance: TOZINAMERAN
     Indication: COVID-19 IMMUNISATION
     Dosage: SINGLE DOSE
     Dates: start: 20210119, end: 20210119
  2. PREGABALIN. [Suspect]
     Active Substance: PREGABALIN
     Dosage: 75 MG, TWICE DAILY
     Dates: start: 20210122, end: 20210122

REACTIONS (3)
  - Gait inability [Not Recovered/Not Resolved]
  - Dizziness [Not Recovered/Not Resolved]
  - Balance disorder [Not Recovered/Not Resolved]

NARRATIVE: CASE EVENT DATE: 20210122
